FAERS Safety Report 23742393 (Version 1)
Quarter: 2024Q2

REPORT INFORMATION
  Report Type: Spontaneous
  Country: US (occurrence: None)
  Receive Date: 20240412
  Receipt Date: 20240412
  Transmission Date: 20240716
  Serious: No
  Sender: FDA-Public Use
  Company Number: None

PATIENT
  Sex: Female
  Weight: 70.2 kg

DRUGS (5)
  1. DULOXETINE [Suspect]
     Active Substance: DULOXETINE
     Indication: Fibromyalgia
  2. GABAPENTIN [Concomitant]
     Active Substance: GABAPENTIN
  3. DICYCLOMINE [Concomitant]
     Active Substance: DICYCLOMINE HYDROCHLORIDE
  4. CETIRIZINE [Concomitant]
     Active Substance: CETIRIZINE HYDROCHLORIDE
  5. TROSPIUM [Concomitant]
     Active Substance: TROSPIUM

REACTIONS (24)
  - Depression [None]
  - Hyperhidrosis [None]
  - Insomnia [None]
  - Middle insomnia [None]
  - Fatigue [None]
  - Nervousness [None]
  - Frustration tolerance decreased [None]
  - Mood swings [None]
  - Abdominal pain upper [None]
  - Muscle spasms [None]
  - Constipation [None]
  - Feeling abnormal [None]
  - Restlessness [None]
  - Suicidal ideation [None]
  - Fear [None]
  - Tremor [None]
  - Tongue movement disturbance [None]
  - Speech disorder [None]
  - Headache [None]
  - Dizziness [None]
  - Weight decreased [None]
  - Nerve injury [None]
  - Muscle spasms [None]
  - Neuropathy peripheral [None]
